FAERS Safety Report 17273129 (Version 1)
Quarter: 2020Q1

REPORT INFORMATION
  Report Type: Spontaneous
  Country: US (occurrence: US)
  Receive Date: 20191224
  Receipt Date: 20191224
  Transmission Date: 20200409
  Serious: Yes (Hospitalization)
  Sender: FDA-Public Use
  Company Number: None

PATIENT
  Age: 13 Year
  Sex: Female

DRUGS (4)
  1. SODIUM CHLORIDE NEPHRON 7% 4ML [Suspect]
     Active Substance: SODIUM CHLORIDE
     Indication: CYSTIC FIBROSIS
     Dosage: ?          OTHER DOSE:1 VIAL;?
     Route: 055
     Dates: start: 20160120
  2. PULMOZYME [Suspect]
     Active Substance: DORNASE ALFA
  3. CAYSTON 75 MG INHAL SOLUTION [Concomitant]
  4. SODIUM CHLORIDE NEPHRON 7% 4ML [Suspect]
     Active Substance: SODIUM CHLORIDE
     Indication: CYSTIC FIBROSIS
     Route: 055
     Dates: start: 20160120

REACTIONS (2)
  - Hospitalisation [None]
  - Antibiotic therapy [None]

NARRATIVE: CASE EVENT DATE: 20191224
